FAERS Safety Report 5052662-6 (Version None)
Quarter: 2006Q3

REPORT INFORMATION
  Report Type: 
  Country: None (occurrence: None)
  Receive Date: 20060712
  Receipt Date: 20060712
  Transmission Date: 20061208
  Serious: Yes (Other)
  Sender: FDA-Public Use
  Company Number: None

PATIENT
  Age: 83 Year
  Sex: Male
  Weight: 104.4 kg

DRUGS (14)
  1. RIFAMPIN [Suspect]
  2. WARFARIN SODIUM [Concomitant]
  3. DICLOXACILLIN [Concomitant]
  4. RIFAMPIN [Concomitant]
  5. PAPAIN 830000U / UREA 10% (ACCUZYME) OINT [Concomitant]
  6. POTASSIUM CHLORIDE [Concomitant]
  7. OLANZAPINE [Concomitant]
  8. NITROGLYCERIN [Concomitant]
  9. METOPROLOL SUCCINATE [Concomitant]
  10. FUROSEMIDE [Concomitant]
  11. FLUOXETINE [Concomitant]
  12. NITROGLYCERIN [Concomitant]
  13. MILK OF MAGNESIA TAB [Concomitant]
  14. ACETAMINOPHEN [Concomitant]

REACTIONS (1)
  - HEPATIC ENZYME ABNORMAL [None]
